FAERS Safety Report 23268356 (Version 1)
Quarter: 2023Q4

REPORT INFORMATION
  Report Type: Spontaneous
  Country: TW (occurrence: TW)
  Receive Date: 20231206
  Receipt Date: 20231206
  Transmission Date: 20240109
  Serious: Yes (Other)
  Sender: FDA-Public Use
  Company Number: TW-ASTELLAS-2023US035887

PATIENT
  Age: 62 Year
  Sex: Male

DRUGS (34)
  1. TACROLIMUS [Suspect]
     Active Substance: TACROLIMUS
     Indication: Prophylaxis against transplant rejection
     Dosage: UNK UNK, UNKNOWN FREQ.
     Route: 065
     Dates: start: 20220602
  2. TACROLIMUS [Suspect]
     Active Substance: TACROLIMUS
     Dosage: 3-3 MG, UNKNOWN FREQ.(OPERATION)
     Route: 065
  3. TACROLIMUS [Suspect]
     Active Substance: TACROLIMUS
     Dosage: 2.5 MG, UNKNOWN FREQ.(POST OPERATION DAY 1)
     Route: 065
  4. TACROLIMUS [Suspect]
     Active Substance: TACROLIMUS
     Dosage: 2.5 MG, UNKNOWN FREQ.(POST OPERATION DAY 2)
     Route: 065
  5. TACROLIMUS [Suspect]
     Active Substance: TACROLIMUS
     Dosage: 3 MG, UNKNOWN FREQ.(POST OPERATION DAY 3)
     Route: 065
  6. TACROLIMUS [Suspect]
     Active Substance: TACROLIMUS
     Dosage: 3.5 MG, UNKNOWN FREQ.(POST OPERATION DAY 5)
     Route: 065
  7. TACROLIMUS [Suspect]
     Active Substance: TACROLIMUS
     Dosage: 4 MG, UNKNOWN FREQ.(POST OPERATION DAY 6)
     Route: 065
  8. TACROLIMUS [Suspect]
     Active Substance: TACROLIMUS
     Dosage: 4 MG, UNKNOWN FREQ.(POST OPERATION DAY 7)
     Route: 065
  9. TACROLIMUS [Suspect]
     Active Substance: TACROLIMUS
     Dosage: 4.5 MG, UNKNOWN FREQ.(POST OPERATION DAY 8)
     Route: 065
  10. TACROLIMUS [Suspect]
     Active Substance: TACROLIMUS
     Dosage: 4.5 MG, UNKNOWN FREQ.(POST OPERATION DAY 10)
     Route: 065
  11. TACROLIMUS [Suspect]
     Active Substance: TACROLIMUS
     Dosage: 4.5 MG, UNKNOWN FREQ.(POST OPERATION DAY 11)
     Route: 065
  12. TACROLIMUS [Suspect]
     Active Substance: TACROLIMUS
     Dosage: 4-4 MG, UNKNOWN FREQ.(21 DAY)
     Route: 065
  13. TACROLIMUS [Suspect]
     Active Substance: TACROLIMUS
     Dosage: 4-4 MG, UNKNOWN FREQ.(1 MONTH)
     Route: 065
  14. TACROLIMUS [Suspect]
     Active Substance: TACROLIMUS
     Dosage: 3.5 MG, UNKNOWN FREQ.(1.5 MONTH)
     Route: 065
  15. TACROLIMUS [Suspect]
     Active Substance: TACROLIMUS
     Dosage: 3.5 MG, UNKNOWN FREQ.(2 MONTH)
     Route: 065
  16. TACROLIMUS [Suspect]
     Active Substance: TACROLIMUS
     Dosage: 3.5 MG, UNKNOWN FREQ.(3 MONTH)
     Route: 065
  17. TACROLIMUS [Suspect]
     Active Substance: TACROLIMUS
     Dosage: 3 MG, UNKNOWN FREQ.(4 MONTH)
     Route: 065
  18. TACROLIMUS [Suspect]
     Active Substance: TACROLIMUS
     Dosage: 1.5 MG, UNKNOWN FREQ.(5 MONTH)
     Route: 065
  19. TACROLIMUS [Suspect]
     Active Substance: TACROLIMUS
     Dosage: 1.5 MG, UNKNOWN FREQ.(6 MONTH)
     Route: 065
  20. TACROLIMUS [Suspect]
     Active Substance: TACROLIMUS
     Dosage: 1.5 MG, UNKNOWN FREQ.(7 MONTH)
     Route: 065
  21. TACROLIMUS [Suspect]
     Active Substance: TACROLIMUS
     Dosage: 1.5 MG, UNKNOWN FREQ.(8 MONTH)
     Route: 065
  22. MYCOPHENOLATE MOFETIL [Concomitant]
     Active Substance: MYCOPHENOLATE MOFETIL
     Indication: Product used for unknown indication
     Dosage: UNK UNK, UNKNOWN FREQ.
     Route: 065
  23. MYCOPHENOLATE MOFETIL [Concomitant]
     Active Substance: MYCOPHENOLATE MOFETIL
     Dosage: 720, NO UNITS UNKNOWN FREQ.(21 DAY)
     Route: 065
  24. MYCOPHENOLATE MOFETIL [Concomitant]
     Active Substance: MYCOPHENOLATE MOFETIL
     Dosage: 720, NO UNITS UNKNOWN FREQ.(1 MONTH)
     Route: 065
  25. MYCOPHENOLATE MOFETIL [Concomitant]
     Active Substance: MYCOPHENOLATE MOFETIL
     Dosage: 720, NO UNITS UNKNOWN FREQ.(1.5 MONTH)
     Route: 065
  26. MYCOPHENOLATE MOFETIL [Concomitant]
     Active Substance: MYCOPHENOLATE MOFETIL
     Dosage: 360, NO UNITS UNKNOWN FREQ.(2 MONTH)
     Route: 065
  27. MYCOPHENOLATE MOFETIL [Concomitant]
     Active Substance: MYCOPHENOLATE MOFETIL
     Dosage: 360, NO UNITS UNKNOWN FREQ.(3 MONTH)
     Route: 065
  28. MYCOPHENOLATE MOFETIL [Concomitant]
     Active Substance: MYCOPHENOLATE MOFETIL
     Dosage: 360, NO UNITS UNKNOWN FREQ.(4 MONTH)
     Route: 065
  29. MYCOPHENOLATE MOFETIL [Concomitant]
     Active Substance: MYCOPHENOLATE MOFETIL
     Dosage: UNK UNK, UNKNOWN FREQ.(DC)
     Route: 065
  30. RAPAMUNE [Concomitant]
     Active Substance: SIROLIMUS
     Indication: Product used for unknown indication
     Dosage: UNK UNK, UNKNOWN FREQ.
     Route: 065
  31. RAPAMUNE [Concomitant]
     Active Substance: SIROLIMUS
     Dosage: 1 MG, ONCE DAILY (5 MONTH)
     Route: 065
  32. RAPAMUNE [Concomitant]
     Active Substance: SIROLIMUS
     Dosage: 1 MG, ONCE DAILY (6 MONTH)
     Route: 065
  33. RAPAMUNE [Concomitant]
     Active Substance: SIROLIMUS
     Dosage: 1 MG, ONCE DAILY (7 MONTH)
     Route: 065
  34. RAPAMUNE [Concomitant]
     Active Substance: SIROLIMUS
     Dosage: 1 MG, ONCE DAILY (8 MONTH)
     Route: 065

REACTIONS (8)
  - Crystal nephropathy [Unknown]
  - Renal tubular injury [Unknown]
  - Chronic allograft nephropathy [Unknown]
  - Focal segmental glomerulosclerosis [Unknown]
  - Polyomavirus-associated nephropathy [Unknown]
  - Blood urea increased [Unknown]
  - Blood creatinine increased [Unknown]
  - Immunosuppressant drug level decreased [Unknown]
